FAERS Safety Report 4696596-5 (Version None)
Quarter: 2005Q2

REPORT INFORMATION
  Report Type: 
  Country: None (occurrence: None)
  Receive Date: 20050620
  Receipt Date: 20050408
  Transmission Date: 20051028
  Serious: Yes (Other)
  Sender: FDA-Public Use
  Company Number: 200512910US

PATIENT
  Age: 30 Year
  Sex: Male

DRUGS (4)
  1. LANTUS [Suspect]
     Dosage: QAM
  2. LANTUS [Suspect]
     Dosage: 40 IU QPM
     Dates: start: 20050401
  3. INSULIN INJECTION, ISOPHANE (NPH INSULIN) [Concomitant]
  4. REGULAR INSULIN [Concomitant]

REACTIONS (4)
  - BLOOD GLUCOSE DECREASED [None]
  - DIZZINESS [None]
  - HYPOGLYCAEMIA [None]
  - HYPOGLYCAEMIC SEIZURE [None]
